FAERS Safety Report 4548600-2 (Version None)
Quarter: 2004Q4

REPORT INFORMATION
  Report Type: 
  Country: None (occurrence: None)
  Receive Date: 20041227
  Receipt Date: 20041116
  Transmission Date: 20050328
  Serious: No
  Sender: FDA-Public Use
  Company Number: 04P-163-0273545-00

PATIENT
  Age: 64 Year
  Sex: Male

DRUGS (5)
  1. HUMIRA [Suspect]
     Indication: RHEUMATOID ARTHRITIS
     Dosage: 40 MG. 1 IN 2 WK, SUBCUTANEOUS
     Route: 058
     Dates: start: 20030101
  2. ATORVASTATIN [Concomitant]
  3. NYASTIN [Concomitant]
  4. DIPHENHYDRAMINE HCL [Concomitant]
  5. BUPROPION HCL [Concomitant]

REACTIONS (1)
  - NAIL DISCOLOURATION [None]
